FAERS Safety Report 17175716 (Version 1)
Quarter: 2019Q4

REPORT INFORMATION
  Report Type: Other
  Country: DE (occurrence: DE)
  Receive Date: 20191219
  Receipt Date: 20191219
  Transmission Date: 20200122
  Serious: No
  Sender: FDA-Public Use
  Company Number: DE-LUPIN PHARMACEUTICALS INC.-2019-06731

PATIENT
  Age: 30 Year
  Sex: Female
  Weight: 64 kg

DRUGS (2)
  1. SERTRALINE [Suspect]
     Active Substance: SERTRALINE HYDROCHLORIDE
     Indication: POST-TRAUMATIC STRESS DISORDER
     Dosage: 75 MILLIGRAM, UNK (INITIAL DOSE TO 75 MG ADDED, DUE TO THE RECURRENT GASTRITIS NOW TO 25 MG RED)
     Route: 048
     Dates: start: 20180808
  2. SERTRALINE [Suspect]
     Active Substance: SERTRALINE HYDROCHLORIDE
     Indication: DEPRESSION
     Dosage: 25 MILLIGRAM, UNK (INITIAL DOSE TO 75 MG ADDED, DUE TO THE RECURRENT GASTRITIS NOW TO 25 MG RED)
     Route: 048

REACTIONS (4)
  - Nervous system disorder [Not Recovered/Not Resolved]
  - Gastric pH decreased [Recovering/Resolving]
  - Gastritis [Recovering/Resolving]
  - Duodenitis [Recovering/Resolving]

NARRATIVE: CASE EVENT DATE: 20180810
